FAERS Safety Report 8486963-6 (Version None)
Quarter: 2012Q3

REPORT INFORMATION
  Report Type: 
  Country: None (occurrence: None)
  Receive Date: 20120704
  Receipt Date: 20120621
  Transmission Date: 20120928
  Serious: Yes (Hospitalization, Other)
  Sender: FDA-Public Use
  Company Number: BR-TEVA-345845ISR

PATIENT
  Sex: Female
  Weight: 62 kg

DRUGS (4)
  1. FOLIC ACID [Concomitant]
  2. TEGREX [Concomitant]
  3. AZATHIOPRINE [Concomitant]
  4. COPAXONE [Suspect]
     Indication: MULTIPLE SCLEROSIS
     Dosage: 20 MILLIGRAM;
     Route: 058
     Dates: start: 20070409, end: 20110201

REACTIONS (1)
  - NEUROMYELITIS OPTICA [None]
